FAERS Safety Report 13942343 (Version 1)
Quarter: 2017Q3

REPORT INFORMATION
  Report Type: Report from Study
  Country: US (occurrence: US)
  Receive Date: 20170906
  Receipt Date: 20170906
  Transmission Date: 20171127
  Serious: Yes (Hospitalization, Other)
  Sender: FDA-Public Use
  Company Number: US-ARALEZ PHARMACEUTICALS R+D INC.-2017-ARA-000317

PATIENT
  Age: 40 Year
  Sex: Male
  Weight: 124 kg

DRUGS (9)
  1. PROTONIX [Concomitant]
     Active Substance: PANTOPRAZOLE SODIUM
     Indication: PRODUCT USED FOR UNKNOWN INDICATION
     Dosage: UNK
     Route: 048
  2. TOPROL XL [Suspect]
     Active Substance: METOPROLOL SUCCINATE
     Indication: STENT PLACEMENT
     Dosage: 25 MG, QD
     Route: 048
  3. CELEXA [Concomitant]
     Active Substance: CITALOPRAM HYDROBROMIDE
     Indication: ANXIETY
     Dosage: UNK
     Route: 048
  4. LANTUS [Concomitant]
     Active Substance: INSULIN GLARGINE
     Indication: TYPE 2 DIABETES MELLITUS
     Dosage: 1 DF, 12 HOURS
     Route: 058
  5. FISH OIL [Concomitant]
     Active Substance: FISH OIL
     Indication: HYPERCHOLESTEROLAEMIA
     Dosage: 1000 MG, UNK
     Route: 048
  6. BABY ASPIRIN [Concomitant]
     Active Substance: ASPIRIN
     Indication: CARDIAC DISORDER
     Dosage: UNK
     Route: 048
  7. ZETIA [Concomitant]
     Active Substance: EZETIMIBE
     Indication: HYPERCHOLESTEROLAEMIA
     Dosage: 10 MG, QD
     Route: 048
  8. BRILINTA [Suspect]
     Active Substance: TICAGRELOR
     Indication: STENT PLACEMENT
     Dosage: 90 MG, BID
     Route: 048
     Dates: start: 20170816
  9. CELEXA [Concomitant]
     Active Substance: CITALOPRAM HYDROBROMIDE
     Indication: DEPRESSION

REACTIONS (10)
  - Deep vein thrombosis [Unknown]
  - Seizure [Unknown]
  - Hypertension [Unknown]
  - Gout [Unknown]
  - Stent placement [Unknown]
  - Type 2 diabetes mellitus [Unknown]
  - Pulmonary embolism [Unknown]
  - Hypercholesterolaemia [Unknown]
  - Chest pain [Unknown]
  - Lumbar hernia [Unknown]

NARRATIVE: CASE EVENT DATE: 2014
